FAERS Safety Report 4781161-1 (Version None)
Quarter: 2005Q3

REPORT INFORMATION
  Report Type: 
  Country: None (occurrence: None)
  Receive Date: 20050927
  Receipt Date: 20050927
  Transmission Date: 20060218
  Serious: Yes (Hospitalization)
  Sender: FDA-Public Use
  Company Number: None

PATIENT
  Sex: Male
  Weight: 143 kg

DRUGS (3)
  1. OXALIPLATIN [Suspect]
     Indication: COLON CANCER
     Dosage: SEE IMAGE
     Route: 042
     Dates: start: 20050920, end: 20050920
  2. LEUCOVORIN [Suspect]
     Dosage: SEE IMAGE
     Route: 042
     Dates: start: 20050920, end: 20050920
  3. FLUOROURACIL [Suspect]
     Dosage: SEE IMAGE
     Route: 040
     Dates: start: 20050920, end: 20050920

REACTIONS (1)
  - PULMONARY EMBOLISM [None]
